FAERS Safety Report 16842923 (Version 1)
Quarter: 2019Q3

REPORT INFORMATION
  Report Type: Spontaneous
  Country: IT (occurrence: IT)
  Receive Date: 20190924
  Receipt Date: 20190924
  Transmission Date: 20191005
  Serious: Yes (Hospitalization)
  Sender: FDA-Public Use
  Company Number: IT-TEVA-2019-IT-1111700

PATIENT
  Age: 64 Year
  Sex: Male

DRUGS (2)
  1. ALTIAZEM 60 MG COMPRESSE [Interacting]
     Active Substance: DILTIAZEM HYDROCHLORIDE
     Indication: ACUTE CORONARY SYNDROME
     Dosage: 180MG/ DAY/ 9 DAYS
     Route: 048
     Dates: start: 20190430, end: 20190509
  2. CARBAMAZEPINE. [Suspect]
     Active Substance: CARBAMAZEPINE
     Indication: EPILEPSY
     Dosage: 1000MG/ DAY
     Route: 048

REACTIONS (3)
  - Nystagmus [Recovered/Resolved]
  - Vertigo [Recovered/Resolved]
  - Drug interaction [Recovered/Resolved]

NARRATIVE: CASE EVENT DATE: 20190506
